FAERS Safety Report 5371805-8 (Version None)
Quarter: 2007Q2

REPORT INFORMATION
  Report Type: 
  Country: None (occurrence: None)
  Receive Date: 20070627
  Receipt Date: 20070625
  Transmission Date: 20071010
  Serious: Yes (Life-Threatening)
  Sender: FDA-Public Use
  Company Number: JP-BAYER-200710444BYL

PATIENT
  Age: 70 Year
  Sex: Male

DRUGS (2)
  1. CIPROXAN-I.V. [Suspect]
     Indication: URINARY TRACT INFECTION
     Dosage: TOTAL DAILY DOSE: 600 MG  UNIT DOSE: 300 MG
     Route: 042
     Dates: start: 20070617
  2. CHEMOTHERAPEUTICS [Concomitant]
     Indication: GASTRIC CANCER

REACTIONS (1)
  - PLATELET COUNT DECREASED [None]
